FAERS Safety Report 21343260 (Version 1)
Quarter: 2022Q3

REPORT INFORMATION
  Report Type: Report from Study
  Country: US (occurrence: US)
  Receive Date: 20220916
  Receipt Date: 20220916
  Transmission Date: 20221027
  Serious: Yes (Hospitalization, Other)
  Sender: FDA-Public Use
  Company Number: US-TAKEDA-US201710031

PATIENT
  Age: 58 Year
  Sex: Female
  Weight: 98 kg

DRUGS (12)
  1. TEDUGLUTIDE [Suspect]
     Active Substance: TEDUGLUTIDE
     Indication: Short-bowel syndrome
     Dosage: 5.1 MG, 1X/DAY:QD
     Route: 042
     Dates: start: 20140424, end: 20141121
  2. TEDUGLUTIDE [Suspect]
     Active Substance: TEDUGLUTIDE
     Indication: Short-bowel syndrome
     Dosage: 5.1 MG, 1X/DAY:QD
     Route: 042
     Dates: start: 20140424, end: 20141121
  3. TEDUGLUTIDE [Suspect]
     Active Substance: TEDUGLUTIDE
     Indication: Short-bowel syndrome
     Dosage: 5.1 MG, 1X/DAY:QD
     Route: 042
     Dates: start: 20140424, end: 20141121
  4. TEDUGLUTIDE [Suspect]
     Active Substance: TEDUGLUTIDE
     Indication: Short-bowel syndrome
     Dosage: 5.1 MG, 1X/DAY:QD
     Route: 042
     Dates: start: 20140424, end: 20141121
  5. TEDUGLUTIDE [Suspect]
     Active Substance: TEDUGLUTIDE
     Dosage: 5.0 MG, 1X/DAY:QD
     Route: 042
     Dates: start: 20150609, end: 20151110
  6. TEDUGLUTIDE [Suspect]
     Active Substance: TEDUGLUTIDE
     Dosage: 5.0 MG, 1X/DAY:QD
     Route: 042
     Dates: start: 20150609, end: 20151110
  7. TEDUGLUTIDE [Suspect]
     Active Substance: TEDUGLUTIDE
     Dosage: 5.0 MG, 1X/DAY:QD
     Route: 042
     Dates: start: 20150609, end: 20151110
  8. TEDUGLUTIDE [Suspect]
     Active Substance: TEDUGLUTIDE
     Dosage: 5.0 MG, 1X/DAY:QD
     Route: 042
     Dates: start: 20150609, end: 20151110
  9. TRIAMCINOLONE ACETONIDE [Concomitant]
     Active Substance: TRIAMCINOLONE ACETONIDE
     Indication: Rash
     Dosage: UNK UNK, BID
     Route: 061
     Dates: start: 20151124, end: 20151201
  10. TRAZODONE [Concomitant]
     Active Substance: TRAZODONE HYDROCHLORIDE
     Indication: Insomnia
     Dosage: 100 MILLIGRAM, QD
     Route: 048
     Dates: start: 20141218, end: 201501
  11. FLUCONAZOLE [Concomitant]
     Active Substance: FLUCONAZOLE
     Indication: Bacteraemia
     Dosage: 200 MILLILITER, QD
     Route: 042
     Dates: start: 20141212, end: 20150111
  12. DAPTOMYCIN [Concomitant]
     Active Substance: DAPTOMYCIN
     Indication: Bacteraemia
     Dosage: 50 MICROGRAM, QD
     Route: 058
     Dates: start: 20141212, end: 20150312

REACTIONS (1)
  - Pneumonia haemophilus [Recovered/Resolved]

NARRATIVE: CASE EVENT DATE: 20170202
